FAERS Safety Report 25026348 (Version 2)
Quarter: 2025Q1

REPORT INFORMATION
  Report Type: Spontaneous
  Country: GB (occurrence: GB)
  Receive Date: 20250301
  Receipt Date: 20250306
  Transmission Date: 20250409
  Serious: Yes (Other)
  Sender: ABBVIE
  Company Number: None

PATIENT
  Age: 28 Year
  Sex: Female

DRUGS (1)
  1. GLECAPREVIR\PIBRENTASVIR [Suspect]
     Active Substance: GLECAPREVIR\PIBRENTASVIR
     Indication: Hepatitis C RNA
     Route: 048
     Dates: start: 20250129, end: 20250212

REACTIONS (3)
  - Pustule [Recovering/Resolving]
  - Scab [Unknown]
  - Skin disorder [Unknown]

NARRATIVE: CASE EVENT DATE: 20250201
